FAERS Safety Report 9729448 (Version 1)
Quarter: 2013Q4

REPORT INFORMATION
  Report Type: Spontaneous
  Country: US (occurrence: US)
  Receive Date: 20131204
  Receipt Date: 20131204
  Transmission Date: 20140711
  Serious: No
  Sender: FDA-Public Use
  Company Number: US-GILEAD-2009-0021479

PATIENT
  Sex: Female
  Weight: 86.18 kg

DRUGS (22)
  1. LETAIRIS [Suspect]
     Indication: PULMONARY ARTERIAL HYPERTENSION
     Route: 048
     Dates: start: 20080317
  2. VASOTEC [Concomitant]
  3. DIGOXIN [Concomitant]
  4. ATENOLOL [Concomitant]
  5. IMDUR [Concomitant]
  6. LIPITOR [Concomitant]
  7. ASPIRIN [Concomitant]
  8. LASIX [Concomitant]
  9. ALBUTEROL [Concomitant]
  10. METHYLPREDNISOLONE [Concomitant]
  11. NEXIUM [Concomitant]
  12. CLINDAMYCIN HCL [Concomitant]
  13. CYMBALTA [Concomitant]
  14. GLUCOTROL [Concomitant]
  15. SYNTHROID [Concomitant]
  16. CODEINE [Concomitant]
  17. DITROPAN [Concomitant]
  18. NEVANAC [Concomitant]
  19. OMNIPRED [Concomitant]
  20. VIGAMOX [Concomitant]
  21. MULTIVITAMIN [Concomitant]
  22. VITAMIN B12 [Concomitant]

REACTIONS (1)
  - Palpitations [Unknown]
